FAERS Safety Report 5221078-1 (Version None)
Quarter: 2007Q1

REPORT INFORMATION
  Report Type: 
  Country: None (occurrence: None)
  Receive Date: 20070126
  Receipt Date: 20070119
  Transmission Date: 20070707
  Serious: Yes (Other)
  Sender: FDA-Public Use
  Company Number: AU-GLAXOSMITHKLINE-B0455243A

PATIENT
  Age: 41 Year
  Sex: Male

DRUGS (2)
  1. NICABATE CQ 21MG [Suspect]
     Indication: DRUG WITHDRAWAL MAINTENANCE THERAPY
     Dosage: 1PAT PER DAY
     Route: 062
     Dates: start: 20061219, end: 20070110
  2. CIPRAMIL [Concomitant]
     Route: 065

REACTIONS (6)
  - ANAPHYLACTIC REACTION [None]
  - APPLICATION SITE RASH [None]
  - IMPAIRED DRIVING ABILITY [None]
  - PRURITUS GENERALISED [None]
  - THROAT TIGHTNESS [None]
  - TREMOR [None]
